FAERS Safety Report 4553706-8 (Version None)
Quarter: 2005Q1

REPORT INFORMATION
  Report Type: 
  Country: None (occurrence: None)
  Receive Date: 20050114
  Receipt Date: 20050114
  Transmission Date: 20050727
  Serious: Yes (Hospitalization)
  Sender: FDA-Public Use
  Company Number: None

PATIENT
  Age: 53 Year
  Sex: Female

DRUGS (9)
  1. RANITIDINE [Suspect]
     Indication: PROPHYLAXIS
     Dosage: 50 MG IV Q6H
     Route: 042
     Dates: start: 20041031, end: 20041109
  2. RANITIDINE [Suspect]
     Indication: STRESS ULCER
     Dosage: 50 MG IV Q6H
     Route: 042
     Dates: start: 20041031, end: 20041109
  3. ACETAMINOPHEN [Concomitant]
  4. FOSPHENYTOIN SODIUM [Concomitant]
  5. HYDROCORTISONE SODIUM SUCCUNATE [Concomitant]
  6. LEVOTHYROXINE SODIUM [Concomitant]
  7. MAGNESIUM HYDROXIDE TAB [Concomitant]
  8. OMEPRAZOLE [Concomitant]
  9. FOSPHENYTOIN SODIUM [Concomitant]

REACTIONS (7)
  - ABNORMAL BEHAVIOUR [None]
  - AGITATION [None]
  - CONDITION AGGRAVATED [None]
  - CONFUSIONAL STATE [None]
  - MENTAL STATUS CHANGES [None]
  - SCREAMING [None]
  - THROMBOCYTOPENIA [None]
